FAERS Safety Report 4278723-7 (Version None)
Quarter: 2004Q1

REPORT INFORMATION
  Report Type: 
  Country: None (occurrence: None)
  Receive Date: 20040102
  Receipt Date: 20031118
  Transmission Date: 20041129
  Serious: No
  Sender: FDA-Public Use
  Company Number: BLOC000338

PATIENT
  Age: 44 Year
  Sex: Female

DRUGS (7)
  1. MYOBLOC [Suspect]
     Indication: MIGRAINE
     Dosage: INTRAMUSCULAR
     Route: 030
     Dates: start: 20010824, end: 20010824
  2. VIOXX [Suspect]
     Indication: DRUG USE FOR UNKNOWN INDICATION
     Dates: start: 20010801
  3. MICRONOR [Concomitant]
  4. ZOVIRAX [Concomitant]
  5. PROZAC [Concomitant]
  6. PHRENILIN FORTE (PARACETAMOL/BUTALBITAL) [Concomitant]
  7. AMERGE [Concomitant]

REACTIONS (3)
  - DIZZINESS [None]
  - HYPERTENSION [None]
  - INFLUENZA LIKE ILLNESS [None]
